FAERS Safety Report 7130922-2 (Version None)
Quarter: 2010Q4

REPORT INFORMATION
  Report Type: 
  Country: None (occurrence: None)
  Receive Date: 20101201
  Receipt Date: 20101124
  Transmission Date: 20110411
  Serious: Yes (Hospitalization, Disabling)
  Sender: FDA-Public Use
  Company Number: GB-BRACCO-000305

PATIENT
  Sex: Male

DRUGS (7)
  1. PROHANCE [Suspect]
     Indication: ABSCESS
     Dates: start: 20060817, end: 20060817
  2. PROHANCE [Suspect]
     Indication: NUCLEAR MAGNETIC RESONANCE IMAGING
     Dates: start: 20070110, end: 20070110
  3. PROHANCE [Suspect]
     Dates: start: 20060920, end: 20060920
  4. PROHANCE [Suspect]
     Dates: start: 20070501, end: 20070501
  5. OMNISCAN [Suspect]
     Indication: ABSCESS
     Dates: start: 20060823, end: 20060823
  6. OMNISCAN [Suspect]
     Indication: NUCLEAR MAGNETIC RESONANCE IMAGING
     Dates: start: 20060831, end: 20060831
  7. OMNISCAN [Suspect]
     Dates: start: 20060513, end: 20060513

REACTIONS (1)
  - NEPHROGENIC SYSTEMIC FIBROSIS [None]
